FAERS Safety Report 16858966 (Version 2)
Quarter: 2020Q3

REPORT INFORMATION
  Report Type: Spontaneous
  Country: US (occurrence: US)
  Receive Date: 20190926
  Receipt Date: 20200727
  Transmission Date: 20201102
  Serious: No
  Sender: FDA-Public Use
  Company Number: US-GILEAD-2019-0429637

PATIENT
  Sex: Male
  Weight: 83.9 kg

DRUGS (28)
  1. STRIBILD [Suspect]
     Active Substance: COBICISTAT\ELVITEGRAVIR\EMTRICITABINE\TENOFOVIR DISOPROXIL FUMARATE
     Indication: HIV INFECTION
     Dosage: UNK
     Route: 048
     Dates: start: 2012, end: 2017
  2. PREDNISONE. [Concomitant]
     Active Substance: PREDNISONE
  3. ATORVASTATIN [Concomitant]
     Active Substance: ATORVASTATIN
  4. GABAPENTIN. [Concomitant]
     Active Substance: GABAPENTIN
  5. METHYLPREDNISOLONE. [Concomitant]
     Active Substance: METHYLPREDNISOLONE
  6. DOXYCYCLINE. [Concomitant]
     Active Substance: DOXYCYCLINE
  7. OXYCONTIN [Concomitant]
     Active Substance: OXYCODONE HYDROCHLORIDE
  8. TAMIFLU [Concomitant]
     Active Substance: OSELTAMIVIR PHOSPHATE
  9. VITAMIN D 2000 [Concomitant]
     Active Substance: VITAMIN D NOS
  10. GENVOYA [Concomitant]
     Active Substance: COBICISTAT\ELVITEGRAVIR\EMTRICITABINE\TENOFOVIR ALAFENAMIDE FUMARATE
  11. CELEBREX [Concomitant]
     Active Substance: CELECOXIB
  12. CYCLOBENZAPRINE. [Concomitant]
     Active Substance: CYCLOBENZAPRINE
  13. NAPROXEN. [Concomitant]
     Active Substance: NAPROXEN
  14. OXYCODONE [Concomitant]
     Active Substance: OXYCODONE
  15. TRAMADOL. [Concomitant]
     Active Substance: TRAMADOL
  16. VALACYCLOVIR HCL [Concomitant]
     Active Substance: VALACYCLOVIR HYDROCHLORIDE
  17. CEFDINIR. [Concomitant]
     Active Substance: CEFDINIR
  18. VALTREX [Concomitant]
     Active Substance: VALACYCLOVIR HYDROCHLORIDE
  19. VIAGRA [SILDENAFIL] [Concomitant]
  20. AMOXICILLIN. [Concomitant]
     Active Substance: AMOXICILLIN
  21. ASPIRIN (E.C.) [Concomitant]
     Active Substance: ASPIRIN
  22. BENZONATATE. [Concomitant]
     Active Substance: BENZONATATE
  23. EPZICOM [Concomitant]
     Active Substance: ABACAVIR SULFATE\LAMIVUDINE
  24. LIPITOR [Concomitant]
     Active Substance: ATORVASTATIN CALCIUM
  25. METAXALONE. [Concomitant]
     Active Substance: METAXALONE
  26. NORVIR [Concomitant]
     Active Substance: RITONAVIR
  27. IBUPROFEN. [Concomitant]
     Active Substance: IBUPROFEN
  28. REYATAZ [Concomitant]
     Active Substance: ATAZANAVIR SULFATE

REACTIONS (11)
  - Emotional distress [Not Recovered/Not Resolved]
  - Anxiety [Not Recovered/Not Resolved]
  - Decreased activity [Not Recovered/Not Resolved]
  - Bone density decreased [Unknown]
  - Loss of personal independence in daily activities [Not Recovered/Not Resolved]
  - Economic problem [Not Recovered/Not Resolved]
  - Pain [Not Recovered/Not Resolved]
  - Impaired work ability [Unknown]
  - Quality of life decreased [Not Recovered/Not Resolved]
  - Gait disturbance [Not Recovered/Not Resolved]
  - Anhedonia [Not Recovered/Not Resolved]
